FAERS Safety Report 4633858-1 (Version None)
Quarter: 2005Q2

REPORT INFORMATION
  Report Type: 
  Country: None (occurrence: None)
  Receive Date: 20050408
  Receipt Date: 20050331
  Transmission Date: 20051028
  Serious: Yes (Disabling)
  Sender: FDA-Public Use
  Company Number: 05P-028-0296014-00

PATIENT
  Age: 54 Year
  Sex: Male

DRUGS (6)
  1. BIAXIN XL [Suspect]
     Indication: UPPER RESPIRATORY TRACT INFECTION
     Dosage: 1 GM, 1 IN 1 D, PER ORAL
     Route: 048
     Dates: start: 20041122, end: 20041124
  2. METFORMIN [Concomitant]
  3. GLIBENCLAMIDE [Concomitant]
  4. RAMIPRIL [Concomitant]
  5. ATORVASTATIN CALCIUM [Concomitant]
  6. CLOPIDOGREL BISULFATE [Concomitant]

REACTIONS (2)
  - AGEUSIA [None]
  - ANOSMIA [None]
